FAERS Safety Report 4959594-X (Version None)
Quarter: 2006Q1

REPORT INFORMATION
  Report Type: 
  Country: None (occurrence: None)
  Receive Date: 20060331
  Receipt Date: 20060320
  Transmission Date: 20060701
  Serious: Yes (Life-Threatening, Hospitalization)
  Sender: FDA-Public Use
  Company Number: JP-BRISTOL-MYERS SQUIBB COMPANY-13327317

PATIENT
  Age: 77 Year
  Sex: Male

DRUGS (12)
  1. TRAZODONE HCL [Suspect]
     Indication: DELIRIUM
     Route: 048
     Dates: start: 20060116, end: 20060118
  2. PREDONINE [Concomitant]
     Dates: start: 20060111
  3. ASPIRIN [Concomitant]
     Dates: start: 20060111, end: 20060119
  4. TAKEPRON [Concomitant]
     Dates: start: 20060111, end: 20060119
  5. MAGMITT [Concomitant]
     Dates: start: 20060111
  6. PURSENNID [Concomitant]
     Dates: start: 20060111, end: 20060119
  7. LASIX [Concomitant]
     Dates: start: 20060111
  8. SULPERAZON [Concomitant]
     Dates: start: 20060111, end: 20060124
  9. NOVORAPID [Concomitant]
     Dates: start: 20060111
  10. NOVOLIN [Concomitant]
     Dates: start: 20060111
  11. PREDONINE [Concomitant]
     Dates: start: 20060115
  12. GASTER [Concomitant]
     Dates: start: 20060115, end: 20060130

REACTIONS (1)
  - HYPERCAPNIA [None]
